FAERS Safety Report 8309614-X (Version None)
Quarter: 2012Q2

REPORT INFORMATION
  Report Type: 
  Country: None (occurrence: None)
  Receive Date: 20120425
  Receipt Date: 20120413
  Transmission Date: 20120825
  Serious: Yes (Other)
  Sender: FDA-Public Use
  Company Number: US-JNJFOC-20120214418

PATIENT
  Sex: Female
  Weight: 60.33 kg

DRUGS (1)
  1. REMICADE [Suspect]
     Indication: COLITIS ULCERATIVE
     Dosage: SINCE 3 YEARS
     Route: 042

REACTIONS (7)
  - INTERVERTEBRAL DISC PROTRUSION [None]
  - HEADACHE [None]
  - INFLAMMATION [None]
  - FATIGUE [None]
  - FOOD ALLERGY [None]
  - ARTHRALGIA [None]
  - PAIN [None]
